FAERS Safety Report 24123040 (Version 2)
Quarter: 2024Q3

REPORT INFORMATION
  Report Type: Spontaneous
  Country: FR (occurrence: FR)
  Receive Date: 20240723
  Receipt Date: 20240724
  Transmission Date: 20241017
  Serious: Yes (Other)
  Sender: AUROBINDO
  Company Number: FR-Merck Healthcare KGaA-2024036125

PATIENT
  Sex: Female

DRUGS (2)
  1. CIPROFLOXACIN [Suspect]
     Active Substance: CIPROFLOXACIN
     Indication: Product used for unknown indication
     Dosage: UNK
     Route: 065
  2. LEVOTHYROXINE [Suspect]
     Active Substance: LEVOTHYROXINE\LEVOTHYROXINE SODIUM
     Indication: Post procedural hypothyroidism
     Dosage: 62.5 MICROGRAM 5 DAYS A WEEK AND 68.75 MICROGRAM ON WEEKENDS
     Route: 065

REACTIONS (7)
  - Hyperthyroidism [Unknown]
  - Anxiety [Unknown]
  - Diarrhoea [Unknown]
  - Obsessive-compulsive disorder [Unknown]
  - Vitamin B12 deficiency [Unknown]
  - Blood thyroid stimulating hormone increased [Unknown]
  - Thyroxine decreased [Unknown]
